FAERS Safety Report 18517933 (Version 1)
Quarter: 2020Q4

REPORT INFORMATION
  Report Type: Spontaneous
  Country: FR (occurrence: FR)
  Receive Date: 20201118
  Receipt Date: 20201118
  Transmission Date: 20210114
  Serious: Yes (Other)
  Sender: FDA-Public Use
  Company Number: FR-EPIHEALTH-2020-FR-000292

PATIENT
  Age: 5 Year
  Sex: Male

DRUGS (1)
  1. ACYCLOVIR (NON-SPECIFIC) [Suspect]
     Active Substance: ACYCLOVIR
     Indication: PRODUCT USED FOR UNKNOWN INDICATION
     Route: 048

REACTIONS (3)
  - Pathogen resistance [Unknown]
  - Colitis [Unknown]
  - Stomatitis [Unknown]
